FAERS Safety Report 25931949 (Version 1)
Quarter: 2025Q4

REPORT INFORMATION
  Report Type: Spontaneous
  Country: US (occurrence: US)
  Receive Date: 20251016
  Receipt Date: 20251016
  Transmission Date: 20260117
  Serious: No
  Sender: SANDOZ
  Company Number: US-SANDOZ-SDZ2025US075713

PATIENT
  Sex: Male
  Weight: 122.73 kg

DRUGS (6)
  1. EVEROLIMUS [Suspect]
     Active Substance: EVEROLIMUS
     Indication: Product used for unknown indication
     Dosage: UNK
     Route: 065
     Dates: end: 202509
  2. HYDROCHLOROTHIAZIDE [Suspect]
     Active Substance: HYDROCHLOROTHIAZIDE
     Dosage: 12.5 MG
     Route: 065
  3. HYDROCHLOROTHIAZIDE [Suspect]
     Active Substance: HYDROCHLOROTHIAZIDE
     Indication: Product used for unknown indication
     Dosage: 25 MG
     Route: 065
  4. LOSARTAN POTASSIUM [Suspect]
     Active Substance: LOSARTAN POTASSIUM
     Indication: Product used for unknown indication
     Dosage: 100 MG
     Route: 065
  5. LOSARTAN POTASSIUM [Suspect]
     Active Substance: LOSARTAN POTASSIUM
     Dosage: 25 MG
     Route: 065
  6. LENVIMA [Suspect]
     Active Substance: LENVATINIB
     Indication: Renal neoplasm
     Dosage: 18MG (1-10MG/2-4MG)5 DAY PK-COMM
     Route: 048
     Dates: end: 202509

REACTIONS (6)
  - Ear discomfort [Recovered/Resolved]
  - Jaw disorder [Recovered/Resolved]
  - Oropharyngeal discomfort [Recovered/Resolved]
  - Sinus disorder [Recovered/Resolved]
  - Mental disorder [Not Recovered/Not Resolved]
  - Gastrointestinal disorder [Not Recovered/Not Resolved]
